FAERS Safety Report 24883498 (Version 1)
Quarter: 2025Q1

REPORT INFORMATION
  Report Type: Spontaneous
  Country: US (occurrence: None)
  Receive Date: 20250123
  Receipt Date: 20250123
  Transmission Date: 20250409
  Serious: Yes (Disabling, Other)
  Sender: FDA-CTU
  Company Number: None

PATIENT
  Age: 71 Year
  Sex: Female
  Weight: 73.8 kg

DRUGS (15)
  1. TRUQAP [Suspect]
     Active Substance: CAPIVASERTIB
     Indication: Breast cancer metastatic
     Dosage: OTHER QUANTITY : 2 TABLET(S);?FREQUENCY : EVERY 12 HOURS;?
     Route: 048
     Dates: start: 202410
  2. H20 [Concomitant]
  3. DAPAGLIFLOZIN PROPANEDIOL [Concomitant]
     Active Substance: DAPAGLIFLOZIN PROPANEDIOL
  4. ZOLPIDEM [Concomitant]
     Active Substance: ZOLPIDEM TARTRATE
  5. POTASSIUM CHLORIDE [Concomitant]
     Active Substance: POTASSIUM CHLORIDE
  6. DULOXETINE [Concomitant]
     Active Substance: DULOXETINE
  7. IBUPROFEN [Concomitant]
     Active Substance: IBUPROFEN
  8. BUDESONIDE [Concomitant]
     Active Substance: BUDESONIDE
  9. DILTIAZEM [Concomitant]
     Active Substance: DILTIAZEM
  10. BUMETANIDE [Concomitant]
     Active Substance: BUMETANIDE
  11. LISINOPRIL [Concomitant]
     Active Substance: LISINOPRIL
  12. OZEMPIC [Concomitant]
     Active Substance: SEMAGLUTIDE
  13. Alive Multivitamin [Concomitant]
  14. Occuvite [Concomitant]
  15. Turkey Tail Mushrooms [Concomitant]

REACTIONS (3)
  - Diarrhoea [None]
  - Glycosylated haemoglobin increased [None]
  - Rash [None]

NARRATIVE: CASE EVENT DATE: 20241021
